FAERS Safety Report 7706127-0 (Version None)
Quarter: 2011Q3

REPORT INFORMATION
  Report Type: 
  Country: None (occurrence: None)
  Receive Date: 20110818
  Receipt Date: 20110809
  Transmission Date: 20111222
  Serious: Yes (Disabling, Other)
  Sender: FDA-Public Use
  Company Number: AUR-APL-2011-04664

PATIENT
  Age: 78 Year
  Sex: Female
  Weight: 59.6 kg

DRUGS (6)
  1. OMEPRAZOLE [Concomitant]
  2. CALCIUM/MINERALS/VITAMIN D (CALCIUM W/MINERALS/VITAMIN D NOS) [Concomitant]
  3. GAVISCON (GAVISCON /00237601/) [Concomitant]
  4. ACETAMINOPHEN [Concomitant]
  5. ALENDRONATE SODIUM [Suspect]
     Indication: OSTEOPOROTIC FRACTURE
     Dosage: (70 MG), ORAL
     Route: 048
     Dates: start: 20100911, end: 20110408
  6. BENDROFLUMETHIAZIDE (BENDROFLUMETHIAZIDE) [Concomitant]

REACTIONS (3)
  - OSTEONECROSIS OF JAW [None]
  - DENTAL DISCOMFORT [None]
  - ORAL PAIN [None]
